FAERS Safety Report 9843071 (Version 3)
Quarter: 2014Q2

REPORT INFORMATION
  Report Type: Report from Study
  Country: US (occurrence: US)
  Receive Date: 20140124
  Receipt Date: 20140626
  Transmission Date: 20141212
  Serious: Yes (Hospitalization)
  Sender: FDA-Public Use
  Company Number: US-US-EMD SERONO, INC.-7264500

PATIENT
  Age: 66 Year
  Sex: Female

DRUGS (1)
  1. REBIF [Suspect]
     Indication: MULTIPLE SCLEROSIS
     Route: 058
     Dates: start: 20130820

REACTIONS (4)
  - Renal failure [Recovering/Resolving]
  - Fall [Recovering/Resolving]
  - Periorbital contusion [Recovering/Resolving]
  - Multiple sclerosis relapse [Recovering/Resolving]
